FAERS Safety Report 5588319-2 (Version None)
Quarter: 2008Q1

REPORT INFORMATION
  Report Type: 
  Country: None (occurrence: None)
  Receive Date: 20080111
  Receipt Date: 20080102
  Transmission Date: 20080703
  Serious: Yes (Hospitalization)
  Sender: FDA-Public Use
  Company Number: FR-JNJFOC-20080102209

PATIENT
  Age: 26 Year
  Sex: Female

DRUGS (2)
  1. TRAMADOL HCL [Suspect]
     Indication: BACK PAIN
     Route: 048
  2. DEROXAT [Concomitant]
     Route: 065

REACTIONS (4)
  - BACK PAIN [None]
  - DYSURIA [None]
  - HEADACHE [None]
  - URINARY RETENTION [None]
